FAERS Safety Report 4556126-5 (Version None)
Quarter: 2005Q1

REPORT INFORMATION
  Report Type: 
  Country: None (occurrence: None)
  Receive Date: 20050114
  Receipt Date: 20050103
  Transmission Date: 20050727
  Serious: No
  Sender: FDA-Public Use
  Company Number: 2004UW25160

PATIENT
  Sex: Male
  Weight: 77.1115 kg

DRUGS (2)
  1. PULMICORT [Suspect]
     Indication: CHRONIC OBSTRUCTIVE PULMONARY DISEASE
     Dosage: 2 PUFF BID IH
     Route: 055
  2. SYMBICORT TURBUHALER ^DRACCO^ [Suspect]
     Indication: CHRONIC OBSTRUCTIVE PULMONARY DISEASE
     Dosage: 2 PUFF BID IH
     Route: 055

REACTIONS (1)
  - BLOOD GLUCOSE INCREASED [None]
